FAERS Safety Report 6443766-1 (Version None)
Quarter: 2009Q4

REPORT INFORMATION
  Report Type: 
  Country: None (occurrence: None)
  Receive Date: 20091113
  Receipt Date: 20091102
  Transmission Date: 20100525
  Serious: Yes (Hospitalization)
  Sender: FDA-Public Use
  Company Number: 2009AL006998

PATIENT
  Age: 51 Year
  Sex: Male

DRUGS (1)
  1. PHENYTOIN [Suspect]
     Indication: EPILEPSY
     Dosage: 150 MG;TID

REACTIONS (5)
  - ASTHENIA [None]
  - BLOOD TRIGLYCERIDES INCREASED [None]
  - FATIGUE [None]
  - FIBRILLARY GLOMERULONEPHRITIS [None]
  - NO THERAPEUTIC RESPONSE [None]
